FAERS Safety Report 11135178 (Version 2)
Quarter: 2015Q2

REPORT INFORMATION
  Report Type: Spontaneous
  Country: US (occurrence: US)
  Receive Date: 20150525
  Receipt Date: 20150610
  Transmission Date: 20150821
  Serious: Yes (Other)
  Sender: FDA-Public Use
  Company Number: US-ROCHE-1466588

PATIENT
  Age: 67 Year
  Sex: Male

DRUGS (1)
  1. VALIUM [Suspect]
     Active Substance: DIAZEPAM
     Indication: CARDIOVERSION
     Dosage: IN DIVIDED DOSES
     Route: 065

REACTIONS (1)
  - Ventricular tachycardia [Recovered/Resolved]
